FAERS Safety Report 6619573-3 (Version None)
Quarter: 2010Q1

REPORT INFORMATION
  Report Type: 
  Country: None (occurrence: None)
  Receive Date: 20100309
  Receipt Date: 20100305
  Transmission Date: 20100710
  Serious: Yes (Other)
  Sender: FDA-Public Use
  Company Number: US-ASTRAZENECA-2010SE09545

PATIENT
  Sex: Male

DRUGS (2)
  1. SYMBICORT [Suspect]
     Indication: DYSPNOEA
     Route: 055
  2. PROAIR HFA [Suspect]
     Indication: DYSPNOEA
     Route: 055

REACTIONS (1)
  - WRONG DRUG ADMINISTERED [None]
